FAERS Safety Report 5418267-X (Version None)
Quarter: 2007Q3

REPORT INFORMATION
  Report Type: 
  Country: None (occurrence: None)
  Receive Date: 20070817
  Receipt Date: 20070810
  Transmission Date: 20080115
  Serious: Yes (Hospitalization)
  Sender: FDA-Public Use
  Company Number: B0481527A

PATIENT
  Age: 12 Year
  Sex: Female

DRUGS (5)
  1. ZOFRAN [Suspect]
     Indication: NAUSEA
     Dosage: 9MG PER DAY
     Route: 042
     Dates: start: 20070723, end: 20070724
  2. MORPHINE [Concomitant]
  3. PARACETAMOL [Concomitant]
  4. ZINACEF [Concomitant]
  5. DICLOFENAC [Concomitant]

REACTIONS (6)
  - ABNORMAL BEHAVIOUR [None]
  - AGGRESSION [None]
  - AGITATION [None]
  - CONFUSIONAL STATE [None]
  - NEUROMYOPATHY [None]
  - TREMOR [None]
